FAERS Safety Report 5805924-6 (Version None)
Quarter: 2008Q3

REPORT INFORMATION
  Report Type: 
  Country: None (occurrence: None)
  Receive Date: 20080710
  Receipt Date: 20080605
  Transmission Date: 20090109
  Serious: No
  Sender: FDA-Public Use
  Company Number: US-ASTRAZENECA-2006UW10780

PATIENT
  Age: 547 Month
  Sex: Male
  Weight: 94.5 kg

DRUGS (6)
  1. SEROQUEL [Suspect]
     Indication: DEPRESSION
     Route: 048
     Dates: start: 20040801, end: 20050801
  2. SEROQUEL [Suspect]
     Indication: SCHIZOPHRENIA
     Route: 048
     Dates: start: 20040801, end: 20050801
  3. SEROQUEL [Suspect]
     Indication: PARANOIA
     Route: 048
     Dates: start: 20040801, end: 20050801
  4. HALDOL [Concomitant]
  5. RISPERDAL [Concomitant]
  6. ZYPREXA [Concomitant]

REACTIONS (2)
  - ASTHMA [None]
  - DIABETES MELLITUS [None]
